FAERS Safety Report 9187240 (Version 2)
Quarter: 2013Q4

REPORT INFORMATION
  Report Type: Report from Study
  Country: JP (occurrence: JP)
  Receive Date: 20130322
  Receipt Date: 20131014
  Transmission Date: 20140711
  Serious: Yes (Hospitalization)
  Sender: FDA-Public Use
  Company Number: JP-ACTELION-A-CH2013-80694

PATIENT
  Age: 5 Year
  Sex: Female
  Weight: 12.9 kg

DRUGS (19)
  1. TRACLEER [Suspect]
     Indication: PULMONARY ARTERIAL HYPERTENSION
     Dosage: 25 MG, BID
     Route: 048
     Dates: start: 20111013, end: 20111118
  2. TRACLEER [Suspect]
     Dosage: 9.38 MG, BID
     Route: 048
     Dates: start: 20110812, end: 20110912
  3. TRACLEER [Suspect]
     Dosage: 15.63 MG, BID
     Route: 048
     Dates: start: 20110913, end: 20110928
  4. TRACLEER [Suspect]
     Dosage: 21.88 MG, BID
     Route: 048
     Dates: start: 20110929, end: 20111012
  5. TRACLEER [Suspect]
     Dosage: 28.13 MG, BID
     Route: 048
     Dates: start: 20111119, end: 20120104
  6. TRACLEER [Suspect]
     Dosage: 31.25 MG, BID
     Route: 048
     Dates: start: 20120105
  7. BERAPROST SODIUM [Suspect]
     Indication: PULMONARY ARTERIAL HYPERTENSION
     Dosage: 39.9 ?G, QD
     Route: 048
     Dates: start: 20101129, end: 20110129
  8. BERAPROST SODIUM [Suspect]
     Dosage: 50.1 ?G, QD
     Route: 048
     Dates: start: 20110130, end: 20110606
  9. BERAPROST SODIUM [Suspect]
     Dosage: 60 ?G, QD
     Route: 048
     Dates: start: 20110607, end: 20110829
  10. BERAPROST SODIUM [Suspect]
     Dosage: 39.9 ?G, QD
     Route: 048
     Dates: start: 20110830
  11. ASPIRIN [Suspect]
     Indication: ANTICOAGULANT THERAPY
     Dosage: 50 MG, QD
     Route: 048
     Dates: start: 2006, end: 20111201
  12. SILDENAFIL CITRATE [Concomitant]
  13. FUROSEMIDE [Concomitant]
  14. SPIRONOLACTONE [Concomitant]
  15. DISOPYRAMIDE [Concomitant]
  16. TRICHLORMETHIAZIDE [Concomitant]
  17. POTASSIUM GLUCONATE [Concomitant]
  18. PRANLUKAST [Concomitant]
  19. OXYGEN [Concomitant]

REACTIONS (3)
  - Epistaxis [Recovering/Resolving]
  - Anaemia [Recovering/Resolving]
  - Transfusion [Unknown]
